FAERS Safety Report 19911995 (Version 1)
Quarter: 2021Q4

REPORT INFORMATION
  Report Type: Spontaneous
  Country: KR (occurrence: KR)
  Receive Date: 20211004
  Receipt Date: 20211004
  Transmission Date: 20220303
  Serious: Yes (Other)
  Sender: FDA-Public Use
  Company Number: KR-GLAXOSMITHKLINE-KR2021APC203278

PATIENT
  Age: 70 Year
  Sex: Female
  Weight: 43 kg

DRUGS (17)
  1. KIVEXA [Suspect]
     Active Substance: ABACAVIR SULFATE\LAMIVUDINE
     Indication: HIV infection
     Dosage: 1 MG
     Route: 048
     Dates: start: 20120229
  2. UNSPECIFIED INGREDIENT [Concomitant]
     Active Substance: UNSPECIFIED INGREDIENT
     Indication: Prophylaxis
     Dosage: UNK FILM-COATED TABLET
     Route: 048
     Dates: start: 20160319, end: 20160319
  3. BUPRENORPHINE [Concomitant]
     Active Substance: BUPRENORPHINE
     Indication: Fractured sacrum
     Dosage: UNK
     Route: 061
     Dates: start: 20160319
  4. DICLOFENAC [Concomitant]
     Active Substance: DICLOFENAC
     Indication: Fractured sacrum
     Dosage: UNK
     Route: 030
     Dates: start: 20160315, end: 20160315
  5. DICLOFENAC [Concomitant]
     Active Substance: DICLOFENAC
     Dosage: UNK
     Route: 030
     Dates: start: 20160317, end: 20160317
  6. DICLOFENAC [Concomitant]
     Active Substance: DICLOFENAC
     Dosage: UNK
     Route: 030
     Dates: start: 20160321, end: 20160321
  7. DICLOFENAC [Concomitant]
     Active Substance: DICLOFENAC
     Dosage: UNK
     Route: 030
     Dates: start: 20160328, end: 20160328
  8. GABAPENTIN [Concomitant]
     Active Substance: GABAPENTIN
     Indication: Fractured sacrum
     Dosage: UNK
     Route: 048
     Dates: start: 20160315, end: 20160524
  9. KETOROLAC [Concomitant]
     Active Substance: KETOROLAC TROMETHAMINE
     Indication: Fractured sacrum
     Dosage: UNK
     Route: 042
     Dates: start: 20160314, end: 20160314
  10. MELOXICAM [Concomitant]
     Active Substance: MELOXICAM
     Indication: Fractured sacrum
     Dosage: UNK
     Route: 048
     Dates: start: 20160315, end: 20160524
  11. MINOXIDIL [Concomitant]
     Active Substance: MINOXIDIL
     Indication: Alopecia
     Dosage: UNK, SOLUTION
     Route: 061
     Dates: start: 20160713
  12. MISOPROSTOL [Concomitant]
     Active Substance: MISOPROSTOL
     Indication: Prophylaxis
     Dosage: UNK
     Route: 048
     Dates: start: 20160315, end: 20160524
  13. NEFOPAM [Concomitant]
     Active Substance: NEFOPAM
     Indication: Fractured sacrum
     Dosage: UNK
     Route: 048
     Dates: start: 20160314, end: 20160314
  14. POLYSTYRENE SULFONIC ACID [Concomitant]
     Active Substance: POLYSTYRENE SULFONIC ACID
     Indication: Prophylaxis
     Dosage: UNK
     Route: 048
     Dates: start: 20160314, end: 20160320
  15. ZOLEDRONIC ACID [Concomitant]
     Active Substance: ZOLEDRONIC ACID
     Indication: Osteoporosis
     Dosage: UNK
     Route: 042
     Dates: start: 20160704, end: 20160704
  16. ACETAMINOPHEN\TRAMADOL [Concomitant]
     Active Substance: ACETAMINOPHEN\TRAMADOL
     Indication: Fractured sacrum
     Dosage: UNK
     Route: 048
     Dates: start: 20160315, end: 20160524
  17. TRAZODONE [Concomitant]
     Active Substance: TRAZODONE HYDROCHLORIDE
     Indication: Depression
     Dosage: UNK
     Route: 048
     Dates: start: 20160705

REACTIONS (6)
  - Arrhythmia [Recovered/Resolved]
  - Alopecia [Not Recovered/Not Resolved]
  - Osteoporosis [Not Recovered/Not Resolved]
  - Depression [Not Recovered/Not Resolved]
  - Neck pain [Not Recovered/Not Resolved]
  - Arthralgia [Not Recovered/Not Resolved]

NARRATIVE: CASE EVENT DATE: 20160318
